FAERS Safety Report 17004520 (Version 2)
Quarter: 2019Q4

REPORT INFORMATION
  Report Type: Spontaneous
  Country: US (occurrence: US)
  Receive Date: 20191107
  Receipt Date: 20191114
  Transmission Date: 20200122
  Serious: No
  Sender: FDA-Public Use
  Company Number: US-HORIZON-PEN-0960-2019

PATIENT
  Age: 56 Year
  Sex: Female

DRUGS (4)
  1. PENNSAID [Suspect]
     Active Substance: DICLOFENAC SODIUM
     Indication: PRODUCT USED FOR UNKNOWN INDICATION
     Dosage: 2 PUMPS BID
  2. ZOHYDRO [Concomitant]
     Active Substance: HYDROCODONE BITARTRATE
  3. DUEXIS [Concomitant]
     Active Substance: FAMOTIDINE\IBUPROFEN
  4. LIDOCAINE PATCHES [Concomitant]
     Active Substance: LIDOCAINE

REACTIONS (3)
  - Product residue present [Unknown]
  - Product physical consistency issue [Unknown]
  - Drug ineffective [Unknown]
